FAERS Safety Report 8367263-1 (Version None)
Quarter: 2012Q2

REPORT INFORMATION
  Report Type: 
  Country: None (occurrence: None)
  Receive Date: 20120517
  Receipt Date: 20120502
  Transmission Date: 20120825
  Serious: No
  Sender: FDA-Public Use
  Company Number: US-ASTRAZENECA-2012SE28690

PATIENT
  Age: 62 Year
  Sex: Female
  Weight: 70.3 kg

DRUGS (4)
  1. DIVALPROEX SODIUM [Suspect]
  2. VITAMIN D [Concomitant]
  3. SEROQUEL XR [Suspect]
     Indication: DELUSIONAL DISORDER, UNSPECIFIED TYPE
     Route: 048
  4. MULTI-VITAMINS [Suspect]

REACTIONS (10)
  - OFF LABEL USE [None]
  - GAIT DISTURBANCE [None]
  - VAGINAL CYST [None]
  - FREQUENT BOWEL MOVEMENTS [None]
  - FEELING HOT [None]
  - WEIGHT DECREASED [None]
  - DYSARTHRIA [None]
  - VULVOVAGINAL DRYNESS [None]
  - DRY MOUTH [None]
  - POLLAKIURIA [None]
